FAERS Safety Report 22124825 (Version 2)
Quarter: 2023Q1

REPORT INFORMATION
  Report Type: Report from Study
  Country: US (occurrence: US)
  Receive Date: 20230322
  Receipt Date: 20230330
  Transmission Date: 20230417
  Serious: No
  Sender: FDA-Public Use
  Company Number: US-TAKEDA-2023TUS028259

PATIENT
  Age: 69 Year
  Sex: Female

DRUGS (20)
  1. TEDUGLUTIDE [Suspect]
     Active Substance: TEDUGLUTIDE
     Indication: Short-bowel syndrome
     Dosage: 2.93 MILLIGRAM, QD
     Route: 042
     Dates: start: 20180826, end: 20190530
  2. TEDUGLUTIDE [Suspect]
     Active Substance: TEDUGLUTIDE
     Indication: Short-bowel syndrome
     Dosage: 2.93 MILLIGRAM, QD
     Route: 042
     Dates: start: 20180826, end: 20190530
  3. TEDUGLUTIDE [Suspect]
     Active Substance: TEDUGLUTIDE
     Indication: Short-bowel syndrome
     Dosage: 2.93 MILLIGRAM, QD
     Route: 042
     Dates: start: 20180826, end: 20190530
  4. TEDUGLUTIDE [Suspect]
     Active Substance: TEDUGLUTIDE
     Indication: Short-bowel syndrome
     Dosage: 2.93 MILLIGRAM, QD
     Route: 042
     Dates: start: 20180826, end: 20190530
  5. TEDUGLUTIDE [Suspect]
     Active Substance: TEDUGLUTIDE
     Dosage: 2.93 MILLIGRAM, QD
     Route: 042
     Dates: start: 201906, end: 20201006
  6. TEDUGLUTIDE [Suspect]
     Active Substance: TEDUGLUTIDE
     Dosage: 2.93 MILLIGRAM, QD
     Route: 042
     Dates: start: 201906, end: 20201006
  7. TEDUGLUTIDE [Suspect]
     Active Substance: TEDUGLUTIDE
     Dosage: 2.93 MILLIGRAM, QD
     Route: 042
     Dates: start: 201906, end: 20201006
  8. TEDUGLUTIDE [Suspect]
     Active Substance: TEDUGLUTIDE
     Dosage: 2.93 MILLIGRAM, QD
     Route: 042
     Dates: start: 201906, end: 20201006
  9. TEDUGLUTIDE [Suspect]
     Active Substance: TEDUGLUTIDE
     Dosage: 2.775 MILLIGRAM, QD
     Route: 042
     Dates: start: 20201007, end: 20220901
  10. TEDUGLUTIDE [Suspect]
     Active Substance: TEDUGLUTIDE
     Dosage: 2.775 MILLIGRAM, QD
     Route: 042
     Dates: start: 20201007, end: 20220901
  11. TEDUGLUTIDE [Suspect]
     Active Substance: TEDUGLUTIDE
     Dosage: 2.775 MILLIGRAM, QD
     Route: 042
     Dates: start: 20201007, end: 20220901
  12. TEDUGLUTIDE [Suspect]
     Active Substance: TEDUGLUTIDE
     Dosage: 2.775 MILLIGRAM, QD
     Route: 042
     Dates: start: 20201007, end: 20220901
  13. TEDUGLUTIDE [Suspect]
     Active Substance: TEDUGLUTIDE
     Dosage: 2.775 MILLIGRAM, QD
     Route: 042
     Dates: start: 20220915
  14. TEDUGLUTIDE [Suspect]
     Active Substance: TEDUGLUTIDE
     Dosage: 2.775 MILLIGRAM, QD
     Route: 042
     Dates: start: 20220915
  15. TEDUGLUTIDE [Suspect]
     Active Substance: TEDUGLUTIDE
     Dosage: 2.775 MILLIGRAM, QD
     Route: 042
     Dates: start: 20220915
  16. TEDUGLUTIDE [Suspect]
     Active Substance: TEDUGLUTIDE
     Dosage: 2.775 MILLIGRAM, QD
     Route: 042
     Dates: start: 20220915
  17. TETANUS TOXOID, REDUCED DIPHTHERIA TOXOID AND ACELLULAR PERTUSSIS VACC [Concomitant]
     Active Substance: TETANUS TOXOID, REDUCED DIPHTHERIA TOXOID AND ACELLULAR PERTUSSIS VACCINE ADSORBED, TDAP
     Indication: Prophylaxis
     Dosage: 0.5 MILLILITER, SINGLE
     Route: 030
     Dates: start: 20220929, end: 20220929
  18. DEXAMETHASONE [Concomitant]
     Active Substance: DEXAMETHASONE
     Indication: Synovial cyst
     Dosage: 2 MILLIGRAM, SINGLE
     Route: 050
     Dates: start: 20220421, end: 20220421
  19. NORCO [Concomitant]
     Active Substance: ACETAMINOPHEN\HYDROCODONE BITARTRATE
     Indication: Arthritis
     Dosage: 5 MILLIGRAM, BID
     Route: 048
     Dates: start: 20220124
  20. CHOLESTYRAMINE [Concomitant]
     Active Substance: CHOLESTYRAMINE
     Indication: Diarrhoea
     Dosage: 1 DOSAGE FORM, TID
     Route: 048
     Dates: start: 20210726

REACTIONS (1)
  - Acrochordon [Recovered/Resolved]

NARRATIVE: CASE EVENT DATE: 20220901
